FAERS Safety Report 9272538 (Version 1)
Quarter: 2013Q2

REPORT INFORMATION
  Report Type: Spontaneous
  Country: US (occurrence: US)
  Receive Date: 20130506
  Receipt Date: 20130506
  Transmission Date: 20140414
  Serious: No
  Sender: FDA-Public Use
  Company Number: US-PFIZER INC-2013140214

PATIENT
  Sex: Female

DRUGS (5)
  1. GABAPENTIN [Suspect]
     Indication: PAIN
     Dosage: UNK
  2. GABAPENTIN [Suspect]
     Indication: HYPOAESTHESIA
  3. GABAPENTIN [Suspect]
     Indication: PARALYSIS
  4. GABAPENTIN [Suspect]
     Indication: CEREBROVASCULAR ACCIDENT
  5. TEGRETOL [Suspect]
     Dosage: UNK

REACTIONS (3)
  - Off label use [Unknown]
  - Gait disturbance [Unknown]
  - Drug ineffective [Unknown]
